FAERS Safety Report 7309340-X (Version None)
Quarter: 2011Q1

REPORT INFORMATION
  Report Type: 
  Country: None (occurrence: None)
  Receive Date: 20110223
  Receipt Date: 20110217
  Transmission Date: 20110831
  Serious: Yes (Life-Threatening)
  Sender: FDA-Public Use
  Company Number: US-PFIZER INC-2011036290

PATIENT
  Sex: Male
  Weight: 97.1 kg

DRUGS (1)
  1. TEMSIROLIMUS [Suspect]

REACTIONS (1)
  - LABORATORY TEST ABNORMAL [None]
